FAERS Safety Report 21368768 (Version 1)
Quarter: 2022Q3

REPORT INFORMATION
  Report Type: Report from Study
  Country: US (occurrence: None)
  Receive Date: 20220923
  Receipt Date: 20220923
  Transmission Date: 20221026
  Serious: Yes (Other)
  Sender: FDA-Public Use
  Company Number: 2022A323750

PATIENT
  Sex: Female

DRUGS (1)
  1. LYNPARZA [Suspect]
     Active Substance: OLAPARIB
     Indication: Breast cancer female
     Route: 048
     Dates: start: 20220728

REACTIONS (4)
  - Renal neoplasm [Unknown]
  - Renal function test abnormal [Unknown]
  - Blood calcium increased [Unknown]
  - Fatigue [Unknown]
